FAERS Safety Report 8833511 (Version 3)
Quarter: 2014Q2

REPORT INFORMATION
  Report Type: Spontaneous
  Country: JP (occurrence: JP)
  Receive Date: 20121010
  Receipt Date: 20131231
  Transmission Date: 20141212
  Serious: Yes (Other)
  Sender: FDA-Public Use
  Company Number: JP-ROCHE-1140025

PATIENT
  Age: 33 Year
  Sex: Female

DRUGS (9)
  1. FLOMOXEF SODIUM [Suspect]
     Indication: BACTERIAL INFECTION
     Dosage: DOSAGE IS UNCERTAIN.
     Route: 065
  2. MEROPENEM [Suspect]
     Indication: BACTERIAL INFECTION
     Dosage: DOSAGE IS UNCERTAIN.
     Route: 065
  3. PREDNISOLONE [Concomitant]
     Dosage: DOSE IS UNCERTAIN
     Route: 048
  4. PHENYTOIN [Concomitant]
     Dosage: DOSE IS UNCERTAIN
     Route: 065
  5. ACICLOVIR [Concomitant]
     Dosage: DOSE IS UNCERTAIN
     Route: 065
  6. MEROPENEM [Concomitant]
     Dosage: DOSE IN UNCERTAIN
     Route: 065
  7. DEXAMETHASONE [Concomitant]
     Dosage: DOSE IS UNCERTAIN
     Route: 065
  8. CEFTRIAXONE [Suspect]
     Indication: BACTERIAL INFECTION
     Dosage: DOSAGE IS UNCERTAIN.
     Route: 042
  9. TAMIFLU [Suspect]
     Indication: INFLUENZA
     Dosage: DOSAGE IS UNCERTAIN.
     Route: 065

REACTIONS (5)
  - Encephalitis [Unknown]
  - Erythema [Unknown]
  - Liver disorder [Unknown]
  - Bacterial infection [Unknown]
  - Exposure during pregnancy [Unknown]
